FAERS Safety Report 9435672 (Version 1)
Quarter: 2013Q3

REPORT INFORMATION
  Report Type: Spontaneous
  Country: US (occurrence: US)
  Receive Date: 20130730
  Receipt Date: 20130730
  Transmission Date: 20140515
  Serious: Yes (Other)
  Sender: FDA-Public Use
  Company Number: NY-130254

PATIENT
  Sex: Female

DRUGS (2)
  1. SANI-HANDS 65.9% ETHYL ALCOHOL [Suspect]
     Dates: start: 20130604
  2. INSTANT HAND SANITIZING WIPES [Suspect]
     Indication: SKIN BACTERIAL INFECTION

REACTIONS (3)
  - Accident [None]
  - Thermal burn [None]
  - Thermal burn [None]
